FAERS Safety Report 13446857 (Version 1)
Quarter: 2017Q2

REPORT INFORMATION
  Report Type: Spontaneous
  Country: US (occurrence: US)
  Receive Date: 20170417
  Receipt Date: 20170417
  Transmission Date: 20170830
  Serious: No
  Sender: FDA-Public Use
  Company Number: US-PFIZER INC-2017157159

PATIENT
  Age: 98 Year
  Sex: Female

DRUGS (4)
  1. GLIPIZIDE. [Suspect]
     Active Substance: GLIPIZIDE
     Dosage: 5 MG, UNK (2ND WEEK 5MG)
  2. GLIPIZIDE. [Suspect]
     Active Substance: GLIPIZIDE
     Indication: BLOOD GLUCOSE
     Dosage: 2.5 MG, UNK (1ST WEEK SHE WAS TAKING 2.5MG)
  3. GLUCOTROL [Suspect]
     Active Substance: GLIPIZIDE
     Indication: BLOOD GLUCOSE
     Dosage: 2.5 MG, UNK (2.5MG THE 1ST WEEK)
  4. GLUCOTROL [Suspect]
     Active Substance: GLIPIZIDE
     Dosage: 5 MG, UNK (2ND WEEK ON 5MG)

REACTIONS (1)
  - Drug effect incomplete [Unknown]
